FAERS Safety Report 17418309 (Version 1)
Quarter: 2020Q1

REPORT INFORMATION
  Report Type: Spontaneous
  Country: ES (occurrence: ES)
  Receive Date: 20200214
  Receipt Date: 20200214
  Transmission Date: 20200409
  Serious: Yes (Other)
  Sender: FDA-Public Use
  Company Number: ES-TEVA-2020-ES-1185330

PATIENT
  Age: 84 Year
  Sex: Female

DRUGS (1)
  1. FENTANILO (1543A) [Suspect]
     Active Substance: FENTANYL
     Route: 062
     Dates: start: 2019

REACTIONS (3)
  - Condition aggravated [Unknown]
  - Inappropriate schedule of product administration [Recovered/Resolved]
  - Hypoxic-ischaemic encephalopathy [Unknown]

NARRATIVE: CASE EVENT DATE: 20191107
